FAERS Safety Report 21483351 (Version 2)
Quarter: 2022Q4

REPORT INFORMATION
  Report Type: Spontaneous
  Country: CA (occurrence: CA)
  Receive Date: 20221020
  Receipt Date: 20221104
  Transmission Date: 20230113
  Serious: Yes (Hospitalization, Disabling)
  Sender: FDA-Public Use
  Company Number: CA-TEVA-2022-CA-2816678

PATIENT

DRUGS (1)
  1. TOPOTECAN [Suspect]
     Active Substance: TOPOTECAN HYDROCHLORIDE
     Indication: Congenital retinoblastoma
     Route: 050

REACTIONS (8)
  - Incorrect route of product administration [Unknown]
  - Eye haemorrhage [Not Recovered/Not Resolved]
  - Vitreous disorder [Not Recovered/Not Resolved]
  - Retinal detachment [Not Recovered/Not Resolved]
  - Macular hole [Not Recovered/Not Resolved]
  - Eye injury [Not Recovered/Not Resolved]
  - Chorioretinal scar [Not Recovered/Not Resolved]
  - Retinal degeneration [Not Recovered/Not Resolved]
